FAERS Safety Report 19388108 (Version 1)
Quarter: 2021Q2

REPORT INFORMATION
  Report Type: Spontaneous
  Country: US (occurrence: US)
  Receive Date: 20210607
  Receipt Date: 20210607
  Transmission Date: 20210717
  Serious: No
  Sender: FDA-Public Use
  Company Number: US-PERRIGO-21US003045

PATIENT
  Age: 42 Year
  Sex: Female
  Weight: 61.22 kg

DRUGS (5)
  1. VITAMIN D NOS [Concomitant]
     Active Substance: VITAMIN D NOS
     Indication: SUPPLEMENTATION THERAPY
     Dosage: UNK
     Route: 065
  2. MINOXIDIL. [Suspect]
     Active Substance: MINOXIDIL
     Indication: ALOPECIA
     Dosage: 1/2 CAPFUL, 1 TO 2 TIMES DAILY
     Route: 061
     Dates: start: 202007, end: 202010
  3. MINOXIDIL. [Suspect]
     Active Substance: MINOXIDIL
     Dosage: 1/4 CAPFUL, 1 TO 2 TIMES DAILY
     Route: 061
     Dates: start: 202010, end: 20210201
  4. MULTIVITAMINS, PLAIN [Concomitant]
     Active Substance: VITAMINS
     Indication: SUPPLEMENTATION THERAPY
     Dosage: UNK
     Route: 065
  5. VITAMIN C [Concomitant]
     Active Substance: ASCORBIC ACID
     Indication: SUPPLEMENTATION THERAPY
     Dosage: UNK
     Route: 065

REACTIONS (7)
  - Inappropriate schedule of product administration [Recovered/Resolved]
  - Product administered at inappropriate site [Recovered/Resolved]
  - Application site dryness [Recovering/Resolving]
  - Underdose [Recovered/Resolved]
  - Application site scab [Not Recovered/Not Resolved]
  - Dandruff [Recovering/Resolving]
  - Application site erythema [Not Recovered/Not Resolved]

NARRATIVE: CASE EVENT DATE: 202007
